FAERS Safety Report 5398173-X (Version None)
Quarter: 2007Q3

REPORT INFORMATION
  Report Type: 
  Country: None (occurrence: None)
  Receive Date: 20070726
  Receipt Date: 20070717
  Transmission Date: 20080115
  Serious: Yes (Hospitalization)
  Sender: FDA-Public Use
  Company Number: DE-ABBOTT-07P-062-0374868-00

PATIENT
  Age: 47 Year
  Sex: Female

DRUGS (7)
  1. HUMIRA [Suspect]
     Indication: DRUG USE FOR UNKNOWN INDICATION
     Dates: start: 20030401
  2. METHOTREXATE [Suspect]
     Indication: DRUG USE FOR UNKNOWN INDICATION
     Dates: start: 20050101
  3. METHOTREXATE [Suspect]
     Dates: start: 20020101, end: 20030101
  4. METHOTREXATE [Suspect]
     Dates: start: 20030101, end: 20040101
  5. METHOTREXATE [Suspect]
     Dates: start: 20040101, end: 20050101
  6. SULFASALAZINE [Concomitant]
     Indication: DRUG USE FOR UNKNOWN INDICATION
     Dates: start: 20030101, end: 20040101
  7. ANTIMALARIALS [Concomitant]
     Indication: DRUG USE FOR UNKNOWN INDICATION
     Dates: start: 20030101, end: 20040101

REACTIONS (2)
  - DYSPNOEA EXERTIONAL [None]
  - LARYNGITIS [None]
